FAERS Safety Report 9373131 (Version 1)
Quarter: 2013Q2

REPORT INFORMATION
  Report Type: Spontaneous
  Country: US (occurrence: US)
  Receive Date: 20130627
  Receipt Date: 20130627
  Transmission Date: 20140414
  Serious: Yes (Death, Hospitalization)
  Sender: FDA-Public Use
  Company Number: US-UCBSA-085340

PATIENT
  Age: 76 Year
  Sex: Male
  Weight: 85.7 kg

DRUGS (7)
  1. ZAROXOLYN [Suspect]
     Indication: CARDIAC FAILURE CONGESTIVE
     Dosage: ZAROXOLYN (2.5 MG TABLET), HAS TAKEN A TOTAL OF 5 TABLETS, ON AND OFF ON THE MEDICATION
     Route: 048
     Dates: start: 20130421, end: 20130524
  2. ZAROXOLYN [Suspect]
     Indication: CARDIAC FAILURE CONGESTIVE
     Dosage: ON AND OFF ON THE MEDICATION
     Route: 048
     Dates: start: 201202, end: 201302
  3. LASIX [Suspect]
     Indication: CARDIAC FAILURE CONGESTIVE
     Dosage: HE TOOK 80MG DAILY
     Dates: start: 201304
  4. LASIX [Suspect]
     Indication: CARDIAC FAILURE CONGESTIVE
     Dosage: USUALLY TAKES 60MG DAILY, GETS A VARIABLE DOSE OF LASIX DEPENDING ON HIS CHF FLUID RETENTION STATUS
  5. PROSCAR [Concomitant]
     Indication: PROSTATIC DISORDER
     Dosage: DAILY
  6. TOPROL XL [Concomitant]
     Indication: CARDIAC DISORDER
     Dosage: FROM MANY YEARS
  7. XANTAC [Concomitant]
     Dosage: DAILY

REACTIONS (10)
  - Cardiac failure congestive [Fatal]
  - Multi-organ failure [Fatal]
  - Pain [Unknown]
  - Weight decreased [Unknown]
  - Dehydration [Unknown]
  - Chills [Unknown]
  - Cellulitis [Unknown]
  - Pain in extremity [Unknown]
  - Medication error [Unknown]
  - Contraindication to medical treatment [Unknown]
